FAERS Safety Report 12869669 (Version 1)
Quarter: 2016Q4

REPORT INFORMATION
  Report Type: Spontaneous
  Country: US (occurrence: US)
  Receive Date: 20161020
  Receipt Date: 20161020
  Transmission Date: 20170207
  Serious: Yes (Life-Threatening, Hospitalization)
  Sender: FDA-Public Use
  Company Number: None

PATIENT
  Age: 62 Year
  Sex: Female
  Weight: 26.93 kg

DRUGS (1)
  1. CLOPIDOGREL [Suspect]
     Active Substance: CLOPIDOGREL BISULFATE
     Route: 048
     Dates: start: 20120531, end: 20160823

REACTIONS (4)
  - Product substitution issue [None]
  - Angina pectoris [None]
  - Pain in jaw [None]
  - Increased tendency to bruise [None]

NARRATIVE: CASE EVENT DATE: 20160825
